FAERS Safety Report 6573748-0 (Version None)
Quarter: 2010Q1

REPORT INFORMATION
  Report Type: 
  Country: None (occurrence: None)
  Receive Date: 20100208
  Receipt Date: 20100129
  Transmission Date: 20100710
  Serious: Yes (Other)
  Sender: FDA-Public Use
  Company Number: B0629802A

PATIENT
  Sex: Male

DRUGS (4)
  1. ZIDOVUDINE [Suspect]
     Indication: HIV INFECTION
  2. REYATAZ [Suspect]
     Indication: HIV INFECTION
     Dates: start: 20060101
  3. RITONAVIR [Suspect]
     Indication: HIV INFECTION
     Dates: start: 20060101
  4. DAPSONE [Concomitant]

REACTIONS (1)
  - JAUNDICE [None]
